FAERS Safety Report 8517472-3 (Version None)
Quarter: 2012Q3

REPORT INFORMATION
  Report Type: 
  Country: None (occurrence: None)
  Receive Date: 20120718
  Receipt Date: 20120713
  Transmission Date: 20120928
  Serious: Yes (Other)
  Sender: FDA-Public Use
  Company Number: JP-009507513-1207JPN005091

PATIENT

DRUGS (2)
  1. REBETOL [Suspect]
     Indication: HEPATITIS C
     Dosage: DOSAGE IS UNCERTAIN DURING A DAY.
     Route: 048
     Dates: start: 20110401, end: 20120301
  2. PEG-INTRON [Suspect]
     Indication: HEPATITIS C
     Dosage: DOSAGE IS UNCERTAIN DURING A DAY.
     Route: 058
     Dates: start: 20110401, end: 20120301

REACTIONS (1)
  - INJECTION SITE NECROSIS [None]
